FAERS Safety Report 5043307-X (Version None)
Quarter: 2006Q3

REPORT INFORMATION
  Report Type: 
  Country: None (occurrence: None)
  Receive Date: 20060703
  Receipt Date: 20060703
  Transmission Date: 20061208
  Serious: Yes (Other)
  Sender: FDA-Public Use
  Company Number: None

PATIENT
  Age: 31 Year
  Sex: Male
  Weight: 77.1115 kg

DRUGS (1)
  1. KETEK [Suspect]
     Indication: ACUTE SINUSITIS
     Dosage: PO
     Route: 048
     Dates: start: 20051007, end: 20051012

REACTIONS (3)
  - HEPATITIS VIRAL [None]
  - IMPAIRED WORK ABILITY [None]
  - MENINGITIS VIRAL [None]
